FAERS Safety Report 7319013-5 (Version None)
Quarter: 2011Q1

REPORT INFORMATION
  Report Type: 
  Country: None (occurrence: None)
  Receive Date: 20110228
  Receipt Date: 20110214
  Transmission Date: 20110831
  Serious: Yes (Other)
  Sender: FDA-Public Use
  Company Number: JP-MYLANLABS-2011S1002960

PATIENT
  Age: 36 Year
  Sex: Female
  Weight: 41.2 kg

DRUGS (2)
  1. TAXOL [Suspect]
     Indication: UTERINE CANCER
     Route: 041
     Dates: start: 20100311, end: 20100413
  2. CARBOPLATIN [Suspect]
     Indication: UTERINE CANCER
     Route: 041
     Dates: start: 20100311, end: 20100413

REACTIONS (1)
  - ARTERIAL THROMBOSIS [None]
